FAERS Safety Report 8619040 (Version 2)
Quarter: 2014Q1

REPORT INFORMATION
  Report Type: Spontaneous
  Country: US (occurrence: None)
  Receive Date: 20120323
  Receipt Date: 20140306
  Transmission Date: 20141002
  Serious: Yes (Other)
  Sender: FDA-Public Use
  Company Number: 163-21880-11043680

PATIENT
  Age: 70 Year
  Sex: Female

DRUGS (7)
  1. REVLIMID [Suspect]
     Indication: PLASMA CELL MYELOMA
     Dosage: 25 MG, 1 IN 1 D, PO, 10 MG, 1 IN 1 D, PO
     Route: 048
     Dates: start: 20091201, end: 2010
  2. ASA (ACETYLSALICYLIC ACID) [Concomitant]
  3. SYNTHROID [Concomitant]
  4. QUINAPRIL HYDROCHLORIDE [Concomitant]
  5. SPIRONOLACTONE [Concomitant]
  6. LIPITOR [Concomitant]
  7. CHOLESTYRAMINE (COLESTYRAMINE) [Concomitant]

REACTIONS (1)
  - Deep vein thrombosis [None]
